FAERS Safety Report 16051731 (Version 1)
Quarter: 2019Q1

REPORT INFORMATION
  Report Type: Spontaneous
  Country: PL (occurrence: PL)
  Receive Date: 20190308
  Receipt Date: 20190308
  Transmission Date: 20190418
  Serious: Yes (Hospitalization, Other)
  Sender: FDA-Public Use
  Company Number: PL-ASTELLAS-2019US009238

PATIENT
  Age: 18 Year
  Sex: Male

DRUGS (1)
  1. TACROLIMUS. [Suspect]
     Active Substance: TACROLIMUS
     Indication: RENAL TRANSPLANT
     Dosage: UNK UNK, UNKNOWN FREQ.
     Route: 065

REACTIONS (8)
  - Purtscher retinopathy [Unknown]
  - Renal impairment [Unknown]
  - Hypertension [Unknown]
  - Headache [Unknown]
  - Immunosuppressant drug level increased [Unknown]
  - Blindness [Unknown]
  - Asthenia [Unknown]
  - Deafness [Unknown]
